FAERS Safety Report 11871117 (Version 1)
Quarter: 2015Q4

REPORT INFORMATION
  Report Type: Spontaneous
  Country: US (occurrence: None)
  Receive Date: 20151224
  Receipt Date: 20151224
  Transmission Date: 20160305
  Serious: Yes (Hospitalization)
  Sender: FDA-Public Use
  Company Number: None

PATIENT
  Age: 71 Year
  Sex: Female

DRUGS (8)
  1. LORAZEPAM. [Concomitant]
     Active Substance: LORAZEPAM
  2. MULTIHANCE [Suspect]
     Active Substance: GADOBENATE DIMEGLUMINE
     Indication: NUCLEAR MAGNETIC RESONANCE IMAGING
     Route: 042
     Dates: start: 20150729, end: 20150729
  3. ASPIRIN. [Concomitant]
     Active Substance: ASPIRIN
  4. CARVEDILOL. [Concomitant]
     Active Substance: CARVEDILOL
  5. ENALAPRIL [Concomitant]
     Active Substance: ENALAPRIL
  6. POTASSIUM CHLORIDE. [Concomitant]
     Active Substance: POTASSIUM CHLORIDE
  7. ATORVASTATIN [Concomitant]
     Active Substance: ATORVASTATIN
  8. FUROSEMIDE. [Concomitant]
     Active Substance: FUROSEMIDE

REACTIONS (7)
  - Lip swelling [None]
  - Dyspnoea [None]
  - Oxygen saturation decreased [None]
  - Dyspnoea exertional [None]
  - Oropharyngeal pain [None]
  - Hypoxia [None]
  - Bronchospasm [None]

NARRATIVE: CASE EVENT DATE: 20150729
